FAERS Safety Report 11915864 (Version 2)
Quarter: 2016Q2

REPORT INFORMATION
  Report Type: Spontaneous
  Country: PT (occurrence: PT)
  Receive Date: 20160114
  Receipt Date: 20160428
  Transmission Date: 20160815
  Serious: Yes (Hospitalization)
  Sender: FDA-Public Use
  Company Number: PT-VIFOR (INTERNATIONAL) INC.-VIT-2015-03044

PATIENT
  Age: 74 Year
  Sex: Male

DRUGS (6)
  1. ALFACALCIDOL [Concomitant]
     Active Substance: ALFACALCIDOL
  2. FOLIC ACID. [Concomitant]
     Active Substance: FOLIC ACID
  3. COLECALCIFEROL [Concomitant]
     Active Substance: CHOLECALCIFEROL
     Dosage: 15 DROPS ONCE IN A WEEK
  4. CINACALCET [Concomitant]
     Active Substance: CINACALCET
  5. COMPLEX B [Concomitant]
     Active Substance: CALCIUM PANTOTHENATE\CYANOCOBALAMIN\NIACINAMIDE\PYRIDOXINE HYDROCHLORIDE\RIBOFLAVIN\THIAMINE MONONITRATE
  6. VELPHORO [Suspect]
     Active Substance: FERRIC OXYHYDROXIDE
     Indication: HYPERPHOSPHATAEMIA
     Route: 048
     Dates: start: 20150520, end: 20150527

REACTIONS (1)
  - Pancreatitis acute [Recovered/Resolved]

NARRATIVE: CASE EVENT DATE: 20150527
